FAERS Safety Report 19799342 (Version 1)
Quarter: 2021Q3

REPORT INFORMATION
  Report Type: Spontaneous
  Country: RO (occurrence: RO)
  Receive Date: 20210907
  Receipt Date: 20210907
  Transmission Date: 20211014
  Serious: Yes (Other)
  Sender: FDA-Public Use
  Company Number: RO-MYLANLABS-2020M1030549

PATIENT
  Age: 63 Year
  Sex: Female

DRUGS (3)
  1. ZOLEDRONIC ACID [Suspect]
     Active Substance: ZOLEDRONIC ACID
     Indication: BREAST CANCER
     Dosage: 4 MG, UNK
     Dates: start: 201811
  2. PALBOCICLIB [Suspect]
     Active Substance: PALBOCICLIB
     Indication: BREAST CANCER
     Dosage: 125 MG, CYCLIC (DAYS 1?21)
     Dates: start: 201811
  3. LETROZOLE. [Suspect]
     Active Substance: LETROZOLE
     Indication: BREAST CANCER
     Dosage: 2.5 MG, CYCLIC (DAYS 1?30)
     Dates: start: 201811

REACTIONS (7)
  - Pulmonary fibrosis [Unknown]
  - Ovarian disorder [Unknown]
  - Pancreatic steatosis [Unknown]
  - Uterine polyp [Unknown]
  - Leukopenia [Unknown]
  - Neutropenia [Unknown]
  - Uterine disorder [Unknown]

NARRATIVE: CASE EVENT DATE: 201901
